FAERS Safety Report 21439563 (Version 1)
Quarter: 2022Q4

REPORT INFORMATION
  Report Type: Spontaneous
  Country: US (occurrence: US)
  Receive Date: 20221011
  Receipt Date: 20221011
  Transmission Date: 20230113
  Serious: No
  Sender: FDA-Public Use
  Company Number: US-ORGANON-O2209USA002501

PATIENT
  Sex: Male

DRUGS (2)
  1. SINGULAIR [Suspect]
     Active Substance: MONTELUKAST SODIUM
     Indication: Hypersensitivity
     Dosage: 10MG TABLET AS NEEDED
     Route: 048
     Dates: start: 2021
  2. XANAX [Suspect]
     Active Substance: ALPRAZOLAM
     Dosage: UNK
     Dates: start: 2021

REACTIONS (2)
  - Drug ineffective [Unknown]
  - Malaise [Unknown]

NARRATIVE: CASE EVENT DATE: 20210101
